FAERS Safety Report 20646641 (Version 1)
Quarter: 2022Q1

REPORT INFORMATION
  Report Type: Spontaneous
  Country: US (occurrence: US)
  Receive Date: 20220329
  Receipt Date: 20220329
  Transmission Date: 20220424
  Serious: No
  Sender: FDA-Public Use
  Company Number: US-Calliditas-2022CAL00014

PATIENT
  Age: 61 Year
  Sex: Male

DRUGS (1)
  1. TARPEYO [Suspect]
     Active Substance: BUDESONIDE
     Indication: IgA nephropathy
     Dosage: 16 MG ONCE DAILY
     Route: 050
     Dates: start: 20220303

REACTIONS (6)
  - Blood pressure increased [Unknown]
  - Swelling [Unknown]
  - Weight increased [Unknown]
  - Acne [Unknown]
  - Insomnia [Unknown]
  - Fatigue [Unknown]
